FAERS Safety Report 13001970 (Version 1)
Quarter: 2016Q4

REPORT INFORMATION
  Report Type: Spontaneous
  Country: FR (occurrence: FR)
  Receive Date: 20161206
  Receipt Date: 20161206
  Transmission Date: 20170207
  Serious: Yes (Hospitalization, Other)
  Sender: FDA-Public Use
  Company Number: FR-PFIZER INC-2016555412

PATIENT
  Age: 59 Year
  Sex: Female

DRUGS (12)
  1. ARACYTINE [Suspect]
     Active Substance: CYTARABINE
     Dosage: UNK, CYCLIC
     Route: 042
  2. RISPERDAL [Concomitant]
     Active Substance: RISPERIDONE
     Dosage: 1 MG, 1X/DAY, CONCENTRATION 1MG/ML
     Route: 048
  3. LOVENOX [Concomitant]
     Active Substance: ENOXAPARIN SODIUM
     Dosage: 4000 IU, 1X/DAY
     Dates: start: 20160829
  4. METHOTREXATE. [Suspect]
     Active Substance: METHOTREXATE
     Dosage: UNK UNK, CYCLIC
     Route: 042
  5. ARACYTINE [Suspect]
     Active Substance: CYTARABINE
     Dosage: UNK, CYCLIC
     Route: 042
     Dates: start: 20160818, end: 20160818
  6. ZELITREX [Concomitant]
     Active Substance: VALACYCLOVIR HYDROCHLORIDE
     Dosage: 500 MG, 1X/DAY
  7. NIVESTIM [Concomitant]
     Active Substance: FILGRASTIM
     Dosage: 30 MIU/ 0.5ML, ONE INJECTION DAILY
  8. VINCRISTINE SULFATE. [Suspect]
     Active Substance: VINCRISTINE SULFATE
     Dosage: UNK UNK, CYCLIC
     Route: 042
     Dates: start: 20160823, end: 20160823
  9. OROZAMUDOL [Concomitant]
     Active Substance: TRAMADOL
     Dosage: 50 MG, 3X/DAY, AS NEEDED
  10. METHOTREXATE. [Suspect]
     Active Substance: METHOTREXATE
     Dosage: UNK UNK, CYCLIC
     Route: 042
     Dates: start: 20160823, end: 20160823
  11. VINCRISTINE SULFATE. [Suspect]
     Active Substance: VINCRISTINE SULFATE
     Dosage: UNK UNK, CYCLIC
     Route: 042
  12. BACTRIM [Concomitant]
     Active Substance: SULFAMETHOXAZOLE\TRIMETHOPRIM
     Dosage: ON MONDAY, WEDNESDAY AND FRIDAY
     Dates: start: 20160905

REACTIONS (5)
  - Fatigue [Unknown]
  - Heart rate increased [Unknown]
  - Pancytopenia [Recovered/Resolved]
  - Hypertension [Unknown]
  - Foot fracture [Unknown]

NARRATIVE: CASE EVENT DATE: 20160829
